FAERS Safety Report 8757627 (Version 1)
Quarter: 2012Q4

REPORT INFORMATION
  Report Type: 
  Country: US (occurrence: US)
  Receive Date: 20120828
  Receipt Date: 20120828
  Transmission Date: 20130627
  Serious: Yes (Other)
  Sender: FDA-Public Use
  Company Number: PHHY2012US073580

PATIENT
  Age: 23 Year
  Sex: Female

DRUGS (9)
  1. GILENYA [Suspect]
     Indication: MULTIPLE SCLEROSIS
     Dosage: 0.5 mg, QD
     Route: 048
     Dates: start: 20110324, end: 20120213
  2. KEPPRA [Concomitant]
     Dosage: 1000 mg, BID
     Route: 048
  3. LORTAB [Concomitant]
     Dosage: UNK UKN, UNK
  4. TRAZODONE [Concomitant]
     Dosage: UNK UKN, UNK
     Route: 048
     Dates: end: 201202
  5. GABAPENTIN [Concomitant]
     Dosage: UNK UKN, UNK
     Dates: start: 201202
  6. ADIPEX [Concomitant]
     Dosage: UNK UKN, UNK
     Route: 048
     Dates: end: 201201
  7. ATIVAN [Concomitant]
     Dosage: UNK UKN, UNK
     Route: 048
     Dates: end: 201201
  8. DOXYCLINE ^KALBE FARMA^ [Concomitant]
     Dosage: UNK UKN, UNK
     Route: 048
     Dates: end: 201202
  9. CONTRACEPTIVES [Concomitant]
     Dosage: UNK UKN, UNK

REACTIONS (1)
  - Complex partial seizures [Unknown]
